FAERS Safety Report 13882503 (Version 2)
Quarter: 2017Q3

REPORT INFORMATION
  Report Type: Spontaneous
  Country: AR (occurrence: AR)
  Receive Date: 20170818
  Receipt Date: 20170906
  Transmission Date: 20171127
  Serious: Yes (Other)
  Sender: FDA-Public Use
  Company Number: PHHY2017AR121770

PATIENT
  Sex: Female

DRUGS (2)
  1. ILARIS [Suspect]
     Active Substance: CANAKINUMAB
     Indication: PRODUCT USED FOR UNKNOWN INDICATION
     Dosage: 150 MG, EVERY 8 WEEKS
     Route: 065
     Dates: start: 20101210, end: 201612
  2. ILARIS [Suspect]
     Active Substance: CANAKINUMAB
     Dosage: 150 MG, EVERY 4 WEEKS
     Route: 065
     Dates: start: 201612

REACTIONS (3)
  - Drug ineffective [Unknown]
  - Glaucoma [Recovering/Resolving]
  - Intraocular pressure increased [Recovering/Resolving]
